FAERS Safety Report 13404956 (Version 1)
Quarter: 2017Q2

REPORT INFORMATION
  Report Type: Spontaneous
  Country: US (occurrence: US)
  Receive Date: 20170405
  Receipt Date: 20170405
  Transmission Date: 20170830
  Serious: Yes (Disabling)
  Sender: FDA-Public Use
  Company Number: None

PATIENT
  Age: 56 Year
  Sex: Female
  Weight: 72 kg

DRUGS (14)
  1. HUMIRA [Suspect]
     Active Substance: ADALIMUMAB
     Indication: SYSTEMIC LUPUS ERYTHEMATOSUS
     Dosage: ?          QUANTITY:1 SYRINGE;OTHER FREQUENCY:EVERY OTHER WEEK;?
     Route: 058
     Dates: start: 20170112, end: 20170308
  2. PLAQUINIL [Concomitant]
  3. FOLBIC [Concomitant]
     Active Substance: CYANOCOBALAMIN\FOLIC ACID\PYRIDOXINE
  4. CYMBALTA [Concomitant]
     Active Substance: DULOXETINE HYDROCHLORIDE
  5. RESTORIL [Concomitant]
     Active Substance: TEMAZEPAM
  6. STOOL SOFTNERS [Concomitant]
  7. PRILOSEC [Concomitant]
     Active Substance: OMEPRAZOLE MAGNESIUM
  8. HUMIRA [Suspect]
     Active Substance: ADALIMUMAB
     Indication: CROHN^S DISEASE
     Dosage: ?          QUANTITY:1 SYRINGE;OTHER FREQUENCY:EVERY OTHER WEEK;?
     Route: 058
     Dates: start: 20170112, end: 20170308
  9. VITAMIN D [Concomitant]
     Active Substance: CHOLECALCIFEROL
  10. PHENERGAN [Concomitant]
     Active Substance: PROMETHAZINE HYDROCHLORIDE
  11. PERCOCET [Concomitant]
     Active Substance: ACETAMINOPHEN\OXYCODONE HYDROCHLORIDE
  12. VITAMIN B12 [Concomitant]
     Active Substance: CYANOCOBALAMIN
  13. ADVAIR HFA [Concomitant]
     Active Substance: FLUTICASONE PROPIONATE\SALMETEROL XINAFOATE
  14. ALBERTERAL [Concomitant]

REACTIONS (3)
  - Headache [None]
  - Systemic lupus erythematosus [None]
  - Arthropathy [None]

NARRATIVE: CASE EVENT DATE: 20170208
